FAERS Safety Report 16609061 (Version 1)
Quarter: 2019Q3

REPORT INFORMATION
  Report Type: Spontaneous
  Country: US (occurrence: US)
  Receive Date: 20190720
  Receipt Date: 20190720
  Transmission Date: 20191004
  Serious: Yes (Other)
  Sender: FDA-Public Use
  Company Number: None

PATIENT
  Age: 4 Year
  Sex: Male
  Weight: 20.25 kg

DRUGS (1)
  1. METHYLPHENIDATE CD 10MG CAP [Suspect]
     Active Substance: METHYLPHENIDATE
     Indication: ATTENTION DEFICIT/HYPERACTIVITY DISORDER
     Dosage: ?          QUANTITY:1 CAPSULE(S);?
     Route: 048
     Dates: start: 20190718, end: 20190718

REACTIONS (7)
  - Product substitution issue [None]
  - Fall [None]
  - Head injury [None]
  - Intentional self-injury [None]
  - Attention deficit/hyperactivity disorder [None]
  - Condition aggravated [None]
  - Paradoxical drug reaction [None]

NARRATIVE: CASE EVENT DATE: 20190718
